FAERS Safety Report 8883549 (Version 1)
Quarter: 2012Q4

REPORT INFORMATION
  Report Type: 
  Country: US (occurrence: US)
  Receive Date: 20121102
  Receipt Date: 20121102
  Transmission Date: 20130627
  Serious: No
  Sender: FDA-Public Use
  Company Number: US-ASTRAZENECA-2012SE79105

PATIENT
  Age: 78 Year
  Sex: Female
  Weight: 54.4 kg

DRUGS (8)
  1. TOPROL XL [Suspect]
     Indication: HYPERTENSION
     Route: 048
     Dates: start: 2002
  2. TOPROL XL [Suspect]
     Indication: HYPERTENSION
     Route: 048
     Dates: start: 2012
  3. PRILOSEC [Suspect]
     Indication: GASTROOESOPHAGEAL REFLUX DISEASE
     Route: 048
     Dates: start: 2011
  4. CLONIDINE [Concomitant]
     Indication: HYPERTENSION
  5. NORVASC [Concomitant]
     Indication: HYPERTENSION
  6. COZAAR [Concomitant]
     Indication: HYPERTENSION
  7. NEURONTIN [Concomitant]
     Indication: VULVOVAGINAL PAIN
  8. XANAX [Concomitant]
     Indication: ABDOMINAL PAIN UPPER

REACTIONS (7)
  - Gastrooesophageal reflux disease [Unknown]
  - Large intestine polyp [Unknown]
  - Feeling abnormal [Unknown]
  - Constipation [Unknown]
  - Abdominal pain upper [Unknown]
  - Off label use [Recovered/Resolved]
  - Drug ineffective [Recovered/Resolved]
